FAERS Safety Report 5821854-8 (Version None)
Quarter: 2008Q3

REPORT INFORMATION
  Report Type: 
  Country: None (occurrence: None)
  Receive Date: 20080722
  Receipt Date: 20080707
  Transmission Date: 20090109
  Serious: Yes (Hospitalization)
  Sender: FDA-Public Use
  Company Number: 14730

PATIENT
  Age: 69 Year
  Sex: Male

DRUGS (1)
  1. MORPHINE SULFATE [Suspect]
     Indication: PAIN
     Dosage: 60MG TWICE DAILY ORAL
     Route: 048
     Dates: start: 20080103

REACTIONS (2)
  - FEELING ABNORMAL [None]
  - HALLUCINATION [None]
